FAERS Safety Report 4389873-9 (Version None)
Quarter: 2004Q2

REPORT INFORMATION
  Report Type: 
  Country: None (occurrence: None)
  Receive Date: 20040630
  Receipt Date: 20040617
  Transmission Date: 20050107
  Serious: Yes (Hospitalization)
  Sender: FDA-Public Use
  Company Number: 2004040824

PATIENT
  Age: 70 Year
  Sex: Male
  Weight: 91 kg

DRUGS (4)
  1. NORVASC [Suspect]
     Indication: HYPERTENSION
     Dosage: 10 MG (1 IN 1 D), ORAL
     Route: 048
     Dates: start: 20031201
  2. SALUTEC (HYDROCHLOROTHIAZIDE, RAMIPRIL) [Concomitant]
  3. LEVOTHYROXINE SODIUM [Concomitant]
  4. METFORMIN HCL [Concomitant]

REACTIONS (2)
  - TACHYARRHYTHMIA [None]
  - TACHYCARDIA [None]
